FAERS Safety Report 5991504-9 (Version None)
Quarter: 2008Q4

REPORT INFORMATION
  Report Type: 
  Country: None (occurrence: None)
  Receive Date: 20081211
  Receipt Date: 20081201
  Transmission Date: 20090506
  Serious: Yes (Other)
  Sender: FDA-Public Use
  Company Number: DK-CELGENEUS-044-21880-08120097

PATIENT
  Sex: Male

DRUGS (3)
  1. REVLIMID [Suspect]
     Route: 048
     Dates: start: 20071023, end: 20080527
  2. MELPHALAN [Concomitant]
     Route: 048
     Dates: start: 20071023, end: 20080527
  3. PREDNISOLONE [Concomitant]
     Route: 065
     Dates: start: 20071023, end: 20080527

REACTIONS (2)
  - ANAEMIA HAEMOLYTIC AUTOIMMUNE [None]
  - AUTOIMMUNE THROMBOCYTOPENIA [None]
